FAERS Safety Report 9204801 (Version 1)
Quarter: 2013Q2

REPORT INFORMATION
  Report Type: Spontaneous
  Country: US (occurrence: None)
  Receive Date: 20130401
  Receipt Date: 20130401
  Transmission Date: 20140414
  Serious: No
  Sender: FDA-Public Use
  Company Number: None

PATIENT
  Age: 67 Year
  Sex: Female

DRUGS (8)
  1. POMALYST [Suspect]
     Dosage: POMALYST 4MG DAILY FOR 21/28 DAYS ORAL
     Route: 048
     Dates: start: 20130320
  2. DEXAMETHASONE [Concomitant]
  3. ZOLPIDEM [Concomitant]
  4. VENLAFAXINE [Concomitant]
  5. FENTANYL [Concomitant]
  6. ACETAMINOPHEN [Concomitant]
  7. ASPIRIN [Suspect]
  8. PAMIDRONATE [Suspect]

REACTIONS (3)
  - Pruritus [None]
  - Eyelid oedema [None]
  - Eye swelling [None]
